FAERS Safety Report 16702039 (Version 2)
Quarter: 2019Q3

REPORT INFORMATION
  Report Type: Spontaneous
  Country: US (occurrence: US)
  Receive Date: 20190814
  Receipt Date: 20190927
  Transmission Date: 20191004
  Serious: Yes (Hospitalization, Other)
  Sender: FDA-Public Use
  Company Number: US-JNJFOC-20190811537

PATIENT
  Age: 72 Year
  Sex: Female
  Weight: 54.48 kg

DRUGS (4)
  1. XARELTO [Suspect]
     Active Substance: RIVAROXABAN
     Indication: CEREBROVASCULAR ACCIDENT PROPHYLAXIS
  2. ATORVASTATIN [Concomitant]
     Active Substance: ATORVASTATIN
  3. XARELTO [Suspect]
     Active Substance: RIVAROXABAN
     Indication: ATRIAL FIBRILLATION
     Dosage: UDI NO: 100003844348
     Route: 048
     Dates: start: 2017
  4. MAGNESIUM                          /01455601/ [Concomitant]

REACTIONS (7)
  - Fall [Unknown]
  - Eye haemorrhage [Unknown]
  - Blood disorder [Not Recovered/Not Resolved]
  - Exophthalmos [Unknown]
  - Haemorrhage [Recovered/Resolved]
  - High frequency ablation [Unknown]
  - Product label issue [Unknown]

NARRATIVE: CASE EVENT DATE: 20190517
